FAERS Safety Report 24240946 (Version 1)
Quarter: 2024Q3

REPORT INFORMATION
  Report Type: Spontaneous
  Country: CO (occurrence: CO)
  Receive Date: 20240823
  Receipt Date: 20240823
  Transmission Date: 20241017
  Serious: Yes (Life-Threatening, Hospitalization, Other)
  Sender: BRISTOL MYERS SQUIBB
  Company Number: CO-BRISTOL-MYERS SQUIBB COMPANY-2024-132950

PATIENT
  Age: 56 Year
  Sex: Male

DRUGS (1)
  1. OPDIVO [Suspect]
     Active Substance: NIVOLUMAB
     Indication: Bladder transitional cell carcinoma
     Route: 042
     Dates: start: 20240202

REACTIONS (2)
  - Anaphylactic shock [Recovered/Resolved]
  - Hypotension [Recovered/Resolved]

NARRATIVE: CASE EVENT DATE: 20240508
